FAERS Safety Report 19485703 (Version 1)
Quarter: 2021Q3

REPORT INFORMATION
  Report Type: Spontaneous
  Country: US (occurrence: US)
  Receive Date: 20210702
  Receipt Date: 20210702
  Transmission Date: 20211014
  Serious: No
  Sender: FDA-Public Use
  Company Number: US-SA-2021SA205074

PATIENT
  Sex: Female

DRUGS (2)
  1. CLARITINE [Concomitant]
     Active Substance: LORATADINE
     Dosage: UNK
  2. ALLEGRA [Suspect]
     Active Substance: FEXOFENADINE HYDROCHLORIDE
     Indication: UPPER-AIRWAY COUGH SYNDROME
     Dosage: DRUG STRUCTURE DOSAGE : 180MG DRUG INTERVAL DOSAGE : 24 HOUR DRUG TREATMENT DURATION: 18JUN2021
     Dates: start: 20210617

REACTIONS (1)
  - Drug ineffective [Unknown]
